FAERS Safety Report 21088616 (Version 1)
Quarter: 2022Q3

REPORT INFORMATION
  Report Type: Spontaneous
  Country: CN (occurrence: CN)
  Receive Date: 20220715
  Receipt Date: 20220715
  Transmission Date: 20221027
  Serious: Yes (Hospitalization, Other)
  Sender: FDA-Public Use
  Company Number: CN-009507513-2207CHN002977

PATIENT
  Sex: Female
  Weight: 55 kg

DRUGS (5)
  1. CILASTATIN SODIUM\IMIPENEM [Suspect]
     Active Substance: CILASTATIN SODIUM\IMIPENEM
     Indication: Anti-infective therapy
     Dosage: 0.5 G, Q8H, IV DRIP
     Route: 041
     Dates: start: 20220328, end: 20220403
  2. CILASTATIN SODIUM\IMIPENEM [Suspect]
     Active Substance: CILASTATIN SODIUM\IMIPENEM
     Dosage: 0.5 G, Q8H, IV DRIP
     Route: 041
     Dates: start: 20220405, end: 20220406
  3. MEROPENEM [Suspect]
     Active Substance: MEROPENEM
     Indication: Anti-infective therapy
     Dosage: 0.5 GRAM, Q12H
     Route: 042
     Dates: start: 202204, end: 202204
  4. SODIUM CHLORIDE [Concomitant]
     Active Substance: SODIUM CHLORIDE
     Indication: Medication dilution
     Dosage: STRENGTH: 0.9 %, 100 ML, Q8H, IV DRIP
     Route: 041
     Dates: start: 20220328, end: 20220403
  5. SODIUM CHLORIDE [Concomitant]
     Active Substance: SODIUM CHLORIDE
     Dosage: STRENGTH: 0.9 %,100 ML, Q8H, IV DRIP
     Route: 041
     Dates: start: 20220405, end: 20220406

REACTIONS (4)
  - Epilepsy [Recovered/Resolved]
  - Epilepsy [Recovering/Resolving]
  - Drug ineffective [Unknown]
  - Pyrexia [Unknown]

NARRATIVE: CASE EVENT DATE: 20220401
